FAERS Safety Report 24280124 (Version 2)
Quarter: 2024Q3

REPORT INFORMATION
  Report Type: Spontaneous
  Country: IL (occurrence: IL)
  Receive Date: 20240904
  Receipt Date: 20240916
  Transmission Date: 20241016
  Serious: Yes (Other)
  Sender: TEVA
  Company Number: IL-TEVA-VS-3238330

PATIENT
  Age: 6 Year
  Sex: Male

DRUGS (2)
  1. TRIAMCINOLONE [Suspect]
     Active Substance: TRIAMCINOLONE
     Indication: Vernal keratoconjunctivitis
     Route: 061
  2. CYCLOSPORINE [Suspect]
     Active Substance: CYCLOSPORINE
     Indication: Vernal keratoconjunctivitis
     Route: 061

REACTIONS (2)
  - Glaucoma [Recovered/Resolved]
  - Duodenal ulcer [Recovered/Resolved]
